FAERS Safety Report 6791156-4 (Version None)
Quarter: 2010Q2

REPORT INFORMATION
  Report Type: 
  Country: None (occurrence: None)
  Receive Date: 20100624
  Receipt Date: 20100614
  Transmission Date: 20101027
  Serious: Yes (Other)
  Sender: FDA-Public Use
  Company Number: JP-PFIZER INC-2010074355

PATIENT

DRUGS (1)
  1. SUTENT [Suspect]
     Route: 048

REACTIONS (3)
  - ILL-DEFINED DISORDER [None]
  - MUSCULAR WEAKNESS [None]
  - THYROID DISORDER [None]
